FAERS Safety Report 9219775 (Version 1)
Quarter: 2013Q2

REPORT INFORMATION
  Report Type: Report from Study
  Country: DE (occurrence: DE)
  Receive Date: 20130409
  Receipt Date: 20130409
  Transmission Date: 20140414
  Serious: Yes (Life-Threatening, Hospitalization)
  Sender: FDA-Public Use
  Company Number: DE-BRISTOL-MYERS SQUIBB COMPANY-18732750

PATIENT
  Age: 61 Year
  Sex: Female
  Weight: 79 kg

DRUGS (2)
  1. CARBOPLATIN [Suspect]
     Indication: OVARIAN CANCER
     Dosage: DOSE:500
     Route: 042
     Dates: start: 20130311
  2. PACLITAXEL [Suspect]
     Indication: OVARIAN CANCER
     Dosage: DOSE: 327
     Dates: start: 20130311

REACTIONS (1)
  - Pulmonary embolism [Not Recovered/Not Resolved]
